FAERS Safety Report 20516417 (Version 2)
Quarter: 2022Q1

REPORT INFORMATION
  Report Type: Spontaneous
  Country: JP (occurrence: JP)
  Receive Date: 20220225
  Receipt Date: 20220304
  Transmission Date: 20220423
  Serious: No
  Sender: FDA-Public Use
  Company Number: JP-NBI-J202203477BIPI

PATIENT
  Age: 52 Year
  Sex: Female

DRUGS (3)
  1. JARDIANCE [Suspect]
     Active Substance: EMPAGLIFLOZIN
     Indication: Cardiac failure chronic
     Route: 048
     Dates: start: 20220209, end: 20220301
  2. DEXTROMETHORPHAN HYDROBROMIDE [Suspect]
     Active Substance: DEXTROMETHORPHAN HYDROBROMIDE
     Indication: Nasopharyngitis
     Route: 065
     Dates: start: 20220214
  3. SAMSCA [Concomitant]
     Active Substance: TOLVAPTAN
     Indication: Cardiac failure chronic
     Route: 065

REACTIONS (2)
  - Taste disorder [Unknown]
  - Nasopharyngitis [Unknown]

NARRATIVE: CASE EVENT DATE: 20220214
